FAERS Safety Report 5343277-0 (Version None)
Quarter: 2007Q2

REPORT INFORMATION
  Report Type: 
  Country: None (occurrence: None)
  Receive Date: 20070502
  Receipt Date: 20061017
  Transmission Date: 20071010
  Serious: Yes (Other)
  Sender: FDA-Public Use
  Company Number: PHEH2006US13083

PATIENT
  Age: 29 Year
  Sex: Male
  Weight: 101.6 kg

DRUGS (6)
  1. LOTREL [Suspect]
     Indication: HYPERTENSION
     Dosage: SEE IMAGE
     Route: 048
     Dates: start: 20060419, end: 20060717
  2. LOTREL [Suspect]
     Indication: HYPERTENSION
     Dosage: SEE IMAGE
     Route: 048
     Dates: start: 20060718
  3. MULTIVITAMIN [Concomitant]
  4. ASPIRIN [Concomitant]
  5. VIAGRA [Concomitant]
  6. GINKOBIL (GINKGO BILOBA EXTRACT) [Concomitant]

REACTIONS (1)
  - BLOOD PRESSURE INADEQUATELY CONTROLLED [None]
